FAERS Safety Report 7281225-7 (Version None)
Quarter: 2011Q1

REPORT INFORMATION
  Report Type: 
  Country: None (occurrence: None)
  Receive Date: 20110208
  Receipt Date: 20110131
  Transmission Date: 20110831
  Serious: Yes (Death)
  Sender: FDA-Public Use
  Company Number: CHPA2011US02085

PATIENT
  Age: 70 Year
  Sex: Female

DRUGS (18)
  1. DESIPRAMINE [Suspect]
     Route: 048
  2. DULOXETINE [Suspect]
     Route: 048
  3. PREGABALIN [Suspect]
     Route: 048
  4. FOLIC ACID [Suspect]
     Route: 048
  5. HYDROMORPHONE HCL [Suspect]
     Route: 048
  6. ACETAMINOPHEN AND OXYCODONE HCL [Suspect]
     Route: 048
  7. CYCLOBENZAPRINE [Suspect]
     Route: 048
  8. MELOXICAM [Suspect]
  9. VITAMINS NOS [Suspect]
     Route: 048
  10. TORSEMIDE [Suspect]
     Route: 048
  11. ACETAMINOPHEN [Suspect]
     Route: 048
  12. METHADONE HYDROCHLORIDE [Suspect]
     Route: 048
  13. CLONAZEPAM [Suspect]
     Route: 048
  14. CHLORDIAZEPOXIDE [Suspect]
     Route: 048
  15. LOVASTATIN [Suspect]
     Route: 048
  16. FLUOXETINE HYDROCHLORIDE [Suspect]
     Route: 048
  17. LISINOPRIL [Suspect]
     Route: 048
  18. CALCIUM [Suspect]
     Route: 048

REACTIONS (1)
  - COMPLETED SUICIDE [None]
